FAERS Safety Report 5122135-0 (Version None)
Quarter: 2006Q4

REPORT INFORMATION
  Report Type: 
  Country: None (occurrence: None)
  Receive Date: 20061006
  Receipt Date: 20060927
  Transmission Date: 20070319
  Serious: Yes (Disabling)
  Sender: FDA-Public Use
  Company Number: CA-BOEHRINGER INGELHEIM PHARMACEUTICALS, INC.-2006-CN-00502CN

PATIENT
  Sex: Male

DRUGS (8)
  1. TIPRANAVIR + RITONAVIR CO-ADMIN [Suspect]
     Dates: start: 20050201
  2. PARIET [Concomitant]
  3. FUZEON [Concomitant]
  4. VIREAD [Concomitant]
  5. CIALIS [Concomitant]
  6. TRIZIVIR [Concomitant]
  7. NORVIR [Concomitant]
  8. IMODIUM [Concomitant]

REACTIONS (1)
  - ARTERIAL STENOSIS LIMB [None]
